FAERS Safety Report 4673045-4 (Version None)
Quarter: 2005Q2

REPORT INFORMATION
  Report Type: 
  Country: None (occurrence: None)
  Receive Date: 20050525
  Receipt Date: 20050513
  Transmission Date: 20051028
  Serious: Yes (Other)
  Sender: FDA-Public Use
  Company Number: US-JNJFOC-20050503815

PATIENT
  Sex: Male
  Weight: 83.92 kg

DRUGS (10)
  1. REMICADE [Suspect]
     Indication: RHEUMATOID ARTHRITIS
     Route: 042
  2. PREDNISONE [Concomitant]
  3. ACTONEL [Concomitant]
  4. ZETIA [Concomitant]
  5. LISINOPRIL [Concomitant]
     Indication: BLOOD PRESSURE
  6. EFFEXOR XR [Concomitant]
  7. DETROL LA [Concomitant]
  8. MINOCYCLINE HCL [Concomitant]
     Dosage: DURATION - SEVERAL MONTHS
  9. MIRAPEX [Concomitant]
  10. MIRAPEX [Concomitant]
     Dosage: FOR TWO WEEKS

REACTIONS (7)
  - ASTHENIA [None]
  - BALANCE DISORDER [None]
  - NERVOUSNESS [None]
  - NEUROPATHY [None]
  - SENSORY LOSS [None]
  - SURGERY [None]
  - TREMOR [None]
